FAERS Safety Report 7243854-6 (Version None)
Quarter: 2011Q1

REPORT INFORMATION
  Report Type: 
  Country: None (occurrence: None)
  Receive Date: 20110125
  Receipt Date: 20110119
  Transmission Date: 20110831
  Serious: Yes (Other)
  Sender: FDA-Public Use
  Company Number: A0860500A

PATIENT
  Sex: Female

DRUGS (2)
  1. TYKERB [Suspect]
     Dosage: 1250MG PER DAY
     Route: 048
     Dates: start: 20100307, end: 20110118
  2. XELODA [Suspect]
     Dosage: 1500MG TWICE PER DAY
     Route: 065

REACTIONS (9)
  - OCULAR HYPERAEMIA [None]
  - METASTASES TO CENTRAL NERVOUS SYSTEM [None]
  - PARAESTHESIA [None]
  - FATIGUE [None]
  - SKIN EXFOLIATION [None]
  - DRY SKIN [None]
  - LACRIMATION INCREASED [None]
  - BREAST CANCER [None]
  - EYE SWELLING [None]
